FAERS Safety Report 4408463-2 (Version None)
Quarter: 2004Q3

REPORT INFORMATION
  Report Type: 
  Country: None (occurrence: None)
  Receive Date: 20040723
  Receipt Date: 20040712
  Transmission Date: 20050211
  Serious: Yes (Life-Threatening)
  Sender: FDA-Public Use
  Company Number: HQWYE076314JUL04

PATIENT
  Age: 43 Year
  Sex: Male

DRUGS (3)
  1. GRISACTIN (GRISEOFULVIN (MICROSIZE, UNSPEC) [Suspect]
  2. AMCINONIDE (AMCINONIDE) [Concomitant]
  3. TRETINOIN [Concomitant]

REACTIONS (1)
  - TOXIC EPIDERMAL NECROLYSIS [None]
